FAERS Safety Report 5867430-2 (Version None)
Quarter: 2008Q3

REPORT INFORMATION
  Report Type: 
  Country: None (occurrence: None)
  Receive Date: 20080902
  Receipt Date: 20080830
  Transmission Date: 20090109
  Serious: Yes (Death, Life-Threatening)
  Sender: FDA-Public Use
  Company Number: PHHY2008JP19657

PATIENT

DRUGS (1)
  1. EXJADE [Suspect]
     Indication: IRON OVERLOAD
     Route: 048

REACTIONS (1)
  - CEREBRAL HAEMORRHAGE [None]
